FAERS Safety Report 8329599-X (Version None)
Quarter: 2012Q2

REPORT INFORMATION
  Report Type: 
  Country: None (occurrence: None)
  Receive Date: 20120502
  Receipt Date: 20120425
  Transmission Date: 20120825
  Serious: Yes (Other)
  Sender: FDA-Public Use
  Company Number: PHHY2012RU022460

PATIENT
  Sex: Male

DRUGS (4)
  1. ESSENTIALE FORTE N [Concomitant]
     Indication: HEPATIC STEATOSIS
  2. RASILEZ [Suspect]
     Indication: HYPERTENSION
     Dosage: 150 MG, UNK
     Route: 048
     Dates: start: 20091001, end: 20120301
  3. HEPTRAL [Concomitant]
     Indication: HEPATIC STEATOSIS
     Dosage: 1 DF, BID
     Dates: start: 20120110, end: 20120306
  4. RABEPRAZOLE SODIUM [Concomitant]
     Indication: GASTRITIS EROSIVE
     Dosage: 20 MG, UNK
     Dates: start: 20111014, end: 20120202

REACTIONS (1)
  - HAEMORRHAGIC VASCULITIS [None]
